FAERS Safety Report 8570665-1 (Version None)
Quarter: 2012Q3

REPORT INFORMATION
  Report Type: 
  Country: None (occurrence: None)
  Receive Date: 20120805
  Receipt Date: 20120725
  Transmission Date: 20120928
  Serious: No
  Sender: FDA-Public Use
  Company Number: US-009507513-1207USA009668

PATIENT

DRUGS (1)
  1. HYZAAR [Suspect]

REACTIONS (1)
  - MEMORY IMPAIRMENT [None]
